FAERS Safety Report 8036266-9 (Version None)
Quarter: 2011Q4

REPORT INFORMATION
  Report Type: 
  Country: None (occurrence: None)
  Receive Date: 20111202
  Receipt Date: 20110914
  Transmission Date: 20120403
  Serious: No
  Sender: FDA-Public Use
  Company Number: PHEH2011US05081

PATIENT
  Sex: Male

DRUGS (2)
  1. RISPERDAL [Concomitant]
  2. FANAPT [Suspect]
     Indication: SCHIZOPHRENIA
     Dosage: 1 MG, BID, ORAL
     Route: 048
     Dates: start: 20110901, end: 20110914

REACTIONS (1)
  - SEDATION [None]
